FAERS Safety Report 7743347-3 (Version None)
Quarter: 2011Q3

REPORT INFORMATION
  Report Type: 
  Country: None (occurrence: None)
  Receive Date: 20110909
  Receipt Date: 20110909
  Transmission Date: 20111222
  Serious: No
  Sender: FDA-Public Use
  Company Number: None

PATIENT

DRUGS (1)
  1. GUM PERIOSHIELD MOUTH RINSE [Suspect]

REACTIONS (4)
  - ORAL DISCOMFORT [None]
  - HYPOAESTHESIA ORAL [None]
  - CHOKING SENSATION [None]
  - FEELING ABNORMAL [None]
